FAERS Safety Report 24765433 (Version 1)
Quarter: 2024Q4

REPORT INFORMATION
  Report Type: Spontaneous
  Country: US (occurrence: None)
  Receive Date: 20241220
  Receipt Date: 20241220
  Transmission Date: 20250115
  Serious: Yes (Hospitalization)
  Sender: Public
  Company Number: None

PATIENT
  Age: 69 Year
  Sex: Female

DRUGS (3)
  1. AMBRISENTAN [Suspect]
     Active Substance: AMBRISENTAN
     Indication: Pulmonary arterial hypertension
     Route: 048
  2. ADEMPAS TAB 0.5MG [Concomitant]
  3. METFORMIN TAB 750MG ER [Concomitant]

REACTIONS (2)
  - Cardiac failure [None]
  - Therapy interrupted [None]

NARRATIVE: CASE EVENT DATE: 20241208
